FAERS Safety Report 6068501-0 (Version None)
Quarter: 2009Q1

REPORT INFORMATION
  Report Type: 
  Country: None (occurrence: None)
  Receive Date: 20090206
  Receipt Date: 20090203
  Transmission Date: 20090719
  Serious: Yes (Death)
  Sender: FDA-Public Use
  Company Number: AT-PFIZER INC-2009165100

PATIENT

DRUGS (5)
  1. SUTENT [Suspect]
     Indication: METASTATIC RENAL CELL CARCINOMA
     Route: 048
     Dates: start: 20080826
  2. ATACAND [Concomitant]
     Dosage: 8 MG, 2X/DAY
  3. AMLODIPINE [Concomitant]
     Dosage: 5 MG, 1X/DAY
     Dates: start: 20080911
  4. EUTHYROX [Concomitant]
     Dosage: 50 UG, 1X/DAY
  5. ZOMETA [Concomitant]
     Dosage: 4 MG, UNK
     Dates: start: 20080819

REACTIONS (4)
  - BRAIN OEDEMA [None]
  - CEPHALHAEMATOMA [None]
  - HYPOXIC ENCEPHALOPATHY [None]
  - SUBARACHNOID HAEMORRHAGE [None]
